FAERS Safety Report 25733891 (Version 2)
Quarter: 2025Q3

REPORT INFORMATION
  Report Type: Spontaneous
  Country: CA (occurrence: CA)
  Receive Date: 20250828
  Receipt Date: 20250916
  Transmission Date: 20251021
  Serious: Yes (Congenital Anomaly)
  Sender: BRISTOL-MYERS SQUIBB COMPANY
  Company Number: CA-BRISTOL-MYERS SQUIBB COMPANY-2025-116556

PATIENT

DRUGS (257)
  1. ORENCIA [Suspect]
     Active Substance: ABATACEPT
     Indication: Product used for unknown indication
  2. ORENCIA [Suspect]
     Active Substance: ABATACEPT
  3. ORENCIA [Suspect]
     Active Substance: ABATACEPT
  4. ORENCIA [Suspect]
     Active Substance: ABATACEPT
  5. ORENCIA [Suspect]
     Active Substance: ABATACEPT
  6. ORENCIA [Suspect]
     Active Substance: ABATACEPT
     Indication: Product used for unknown indication
  7. ORENCIA [Suspect]
     Active Substance: ABATACEPT
  8. ORENCIA [Suspect]
     Active Substance: ABATACEPT
     Indication: Product used for unknown indication
  9. ORENCIA [Suspect]
     Active Substance: ABATACEPT
  10. ORENCIA [Suspect]
     Active Substance: ABATACEPT
  11. ACETAMINOPHEN\CODEINE PHOSPHATE [Concomitant]
     Active Substance: ACETAMINOPHEN\CODEINE PHOSPHATE
     Indication: Product used for unknown indication
  12. ACTEMRA [Concomitant]
     Active Substance: TOCILIZUMAB
     Indication: Product used for unknown indication
  13. ACTEMRA [Concomitant]
     Active Substance: TOCILIZUMAB
  14. ACTEMRA [Concomitant]
     Active Substance: TOCILIZUMAB
  15. ACTEMRA [Concomitant]
     Active Substance: TOCILIZUMAB
  16. ACTEMRA [Concomitant]
     Active Substance: TOCILIZUMAB
  17. ACTEMRA [Concomitant]
     Active Substance: TOCILIZUMAB
  18. ACTEMRA [Concomitant]
     Active Substance: TOCILIZUMAB
  19. ACTEMRA [Concomitant]
     Active Substance: TOCILIZUMAB
  20. ACTEMRA [Concomitant]
     Active Substance: TOCILIZUMAB
  21. ACTEMRA [Concomitant]
     Active Substance: TOCILIZUMAB
  22. ACTEMRA [Concomitant]
     Active Substance: TOCILIZUMAB
  23. ACTEMRA [Concomitant]
     Active Substance: TOCILIZUMAB
  24. ACTEMRA [Concomitant]
     Active Substance: TOCILIZUMAB
  25. ACTEMRA [Concomitant]
     Active Substance: TOCILIZUMAB
  26. ACTEMRA [Concomitant]
     Active Substance: TOCILIZUMAB
  27. ACTEMRA [Concomitant]
     Active Substance: TOCILIZUMAB
  28. ACTEMRA [Concomitant]
     Active Substance: TOCILIZUMAB
  29. AIMOVIG [Concomitant]
     Active Substance: ERENUMAB-AOOE
     Indication: Product used for unknown indication
  30. AIMOVIG [Concomitant]
     Active Substance: ERENUMAB-AOOE
  31. ALENDRONATE SODIUM\CHOLECALCIFEROL [Concomitant]
     Active Substance: ALENDRONATE SODIUM\CHOLECALCIFEROL
     Indication: Product used for unknown indication
  32. APREPITANT [Concomitant]
     Active Substance: APREPITANT
     Indication: Product used for unknown indication
  33. ACETAMINOPHEN\CAFFEINE\CODEINE PHOSPHATE [Concomitant]
     Active Substance: ACETAMINOPHEN\CAFFEINE\CODEINE PHOSPHATE
     Indication: Product used for unknown indication
  34. AZATHIOPRINE [Concomitant]
     Active Substance: AZATHIOPRINE
     Indication: Product used for unknown indication
  35. BETAMETHASONE [Concomitant]
     Active Substance: BETAMETHASONE
     Indication: Product used for unknown indication
  36. BOTULINUM TOXIN TYPE A [Concomitant]
     Active Substance: BOTULINUM TOXIN TYPE A
     Indication: Product used for unknown indication
  37. BOTULINUM TOXIN TYPE A [Concomitant]
     Active Substance: BOTULINUM TOXIN TYPE A
  38. BUPRENORPHINE [Concomitant]
     Active Substance: BUPRENORPHINE
     Indication: Product used for unknown indication
  39. BUTRANS [Concomitant]
     Active Substance: BUPRENORPHINE
     Indication: Product used for unknown indication
  40. CANDESARTAN [Concomitant]
     Active Substance: CANDESARTAN
     Indication: Product used for unknown indication
  41. CANDESARTAN [Concomitant]
     Active Substance: CANDESARTAN
  42. CETIRIZINE [Concomitant]
     Active Substance: CETIRIZINE HYDROCHLORIDE
     Indication: Product used for unknown indication
  43. CETIRIZINE [Concomitant]
     Active Substance: CETIRIZINE HYDROCHLORIDE
  44. CETIRIZINE [Concomitant]
     Active Substance: CETIRIZINE HYDROCHLORIDE
  45. CETIRIZINE [Concomitant]
     Active Substance: CETIRIZINE HYDROCHLORIDE
  46. CETIRIZINE [Concomitant]
     Active Substance: CETIRIZINE HYDROCHLORIDE
  47. CETIRIZINE [Concomitant]
     Active Substance: CETIRIZINE HYDROCHLORIDE
  48. CETIRIZINE [Concomitant]
     Active Substance: CETIRIZINE HYDROCHLORIDE
  49. CETIRIZINE [Concomitant]
     Active Substance: CETIRIZINE HYDROCHLORIDE
  50. CETIRIZINE [Concomitant]
     Active Substance: CETIRIZINE HYDROCHLORIDE
  51. CETIRIZINE [Concomitant]
     Active Substance: CETIRIZINE HYDROCHLORIDE
  52. CETIRIZINE [Concomitant]
     Active Substance: CETIRIZINE HYDROCHLORIDE
  53. CETIRIZINE [Concomitant]
     Active Substance: CETIRIZINE HYDROCHLORIDE
  54. CETIRIZINE [Concomitant]
     Active Substance: CETIRIZINE HYDROCHLORIDE
  55. CETIRIZINE [Concomitant]
     Active Substance: CETIRIZINE HYDROCHLORIDE
  56. CIMZIA [Concomitant]
     Active Substance: CERTOLIZUMAB PEGOL
     Indication: Product used for unknown indication
  57. CIMZIA [Concomitant]
     Active Substance: CERTOLIZUMAB PEGOL
  58. CIMZIA [Concomitant]
     Active Substance: CERTOLIZUMAB PEGOL
  59. CLIOQUINOL [Concomitant]
     Active Substance: CLIOQUINOL
     Indication: Product used for unknown indication
  60. COSENTYX [Concomitant]
     Active Substance: SECUKINUMAB
     Indication: Product used for unknown indication
  61. COSENTYX [Concomitant]
     Active Substance: SECUKINUMAB
  62. DESOGESTREL\ETHINYL ESTRADIOL [Concomitant]
     Active Substance: DESOGESTREL\ETHINYL ESTRADIOL
     Indication: Product used for unknown indication
  63. DESOXIMETASONE [Concomitant]
     Active Substance: DESOXIMETASONE
     Indication: Product used for unknown indication
  64. DESOXIMETASONE [Concomitant]
     Active Substance: DESOXIMETASONE
  65. DESOXIMETASONE [Concomitant]
     Active Substance: DESOXIMETASONE
  66. DESOXIMETASONE [Concomitant]
     Active Substance: DESOXIMETASONE
  67. DESOXIMETASONE [Concomitant]
     Active Substance: DESOXIMETASONE
  68. DESOXIMETASONE [Concomitant]
     Active Substance: DESOXIMETASONE
  69. DESOXIMETASONE [Concomitant]
     Active Substance: DESOXIMETASONE
  70. DESOXIMETASONE [Concomitant]
     Active Substance: DESOXIMETASONE
  71. DESOXIMETASONE [Concomitant]
     Active Substance: DESOXIMETASONE
  72. DESOXIMETASONE [Concomitant]
     Active Substance: DESOXIMETASONE
  73. DESOXIMETASONE [Concomitant]
     Active Substance: DESOXIMETASONE
  74. DESOXIMETASONE [Concomitant]
     Active Substance: DESOXIMETASONE
  75. DESOXIMETASONE [Concomitant]
     Active Substance: DESOXIMETASONE
  76. DESOXIMETASONE [Concomitant]
     Active Substance: DESOXIMETASONE
  77. DESOXIMETASONE [Concomitant]
     Active Substance: DESOXIMETASONE
  78. DESOXIMETASONE [Concomitant]
     Active Substance: DESOXIMETASONE
  79. DESOXIMETASONE [Concomitant]
     Active Substance: DESOXIMETASONE
  80. DICLOFENAC [Concomitant]
     Active Substance: DICLOFENAC
     Indication: Product used for unknown indication
  81. DICLOFENAC [Concomitant]
     Active Substance: DICLOFENAC
  82. DICLOFENAC [Concomitant]
     Active Substance: DICLOFENAC
  83. DICLOFENAC SODIUM [Concomitant]
     Active Substance: DICLOFENAC SODIUM
     Indication: Product used for unknown indication
  84. DICLOFENAC SODIUM [Concomitant]
     Active Substance: DICLOFENAC SODIUM
  85. DICLOFENAC SODIUM [Concomitant]
     Active Substance: DICLOFENAC SODIUM
  86. DOMPERIDONE [Concomitant]
     Active Substance: DOMPERIDONE
     Indication: Product used for unknown indication
  87. ERELZI [Concomitant]
     Active Substance: ETANERCEPT-SZZS
     Indication: Product used for unknown indication
  88. ERELZI [Concomitant]
     Active Substance: ETANERCEPT-SZZS
  89. ERELZI [Concomitant]
     Active Substance: ETANERCEPT-SZZS
  90. ERELZI [Concomitant]
     Active Substance: ETANERCEPT-SZZS
  91. ERELZI [Concomitant]
     Active Substance: ETANERCEPT-SZZS
  92. ERELZI [Concomitant]
     Active Substance: ETANERCEPT-SZZS
  93. ERELZI [Concomitant]
     Active Substance: ETANERCEPT-SZZS
  94. FOLIC ACID [Concomitant]
     Active Substance: FOLIC ACID
     Indication: Product used for unknown indication
  95. FOLIC ACID [Concomitant]
     Active Substance: FOLIC ACID
  96. FOLIC ACID [Concomitant]
     Active Substance: FOLIC ACID
  97. FOLIC ACID [Concomitant]
     Active Substance: FOLIC ACID
  98. FOLIC ACID [Concomitant]
     Active Substance: FOLIC ACID
  99. FOLIC ACID [Concomitant]
     Active Substance: FOLIC ACID
  100. FOLIC ACID [Concomitant]
     Active Substance: FOLIC ACID
  101. FOLIC ACID [Concomitant]
     Active Substance: FOLIC ACID
  102. FOLIC ACID [Concomitant]
     Active Substance: FOLIC ACID
  103. FOLIC ACID [Concomitant]
     Active Substance: FOLIC ACID
  104. FOLIC ACID [Concomitant]
     Active Substance: FOLIC ACID
  105. FOLIC ACID [Concomitant]
     Active Substance: FOLIC ACID
  106. FOLIC ACID [Concomitant]
     Active Substance: FOLIC ACID
  107. FOLIC ACID [Concomitant]
     Active Substance: FOLIC ACID
  108. FOLIC ACID [Concomitant]
     Active Substance: FOLIC ACID
  109. FOLIC ACID [Concomitant]
     Active Substance: FOLIC ACID
  110. FOSAMAX [Concomitant]
     Active Substance: ALENDRONATE SODIUM
     Indication: Product used for unknown indication
  111. FOSAMAX [Concomitant]
     Active Substance: ALENDRONATE SODIUM
  112. HYDROMORPHONE HYDROCHLORIDE [Concomitant]
     Active Substance: HYDROMORPHONE HYDROCHLORIDE
     Indication: Product used for unknown indication
  113. HYDROXYCHLOROQUINE [Concomitant]
     Active Substance: HYDROXYCHLOROQUINE
     Indication: Product used for unknown indication
  114. HYDROXYCHLOROQUINE [Concomitant]
     Active Substance: HYDROXYCHLOROQUINE
  115. HYDROXYCHLOROQUINE [Concomitant]
     Active Substance: HYDROXYCHLOROQUINE
  116. HYDROXYCHLOROQUINE [Concomitant]
     Active Substance: HYDROXYCHLOROQUINE
  117. HYDROXYCHLOROQUINE [Concomitant]
     Active Substance: HYDROXYCHLOROQUINE
  118. HYRIMOZ [Concomitant]
     Active Substance: ADALIMUMAB-ADAZ
     Indication: Product used for unknown indication
  119. HYRIMOZ [Concomitant]
     Active Substance: ADALIMUMAB-ADAZ
  120. HYRIMOZ [Concomitant]
     Active Substance: ADALIMUMAB-ADAZ
  121. HYRIMOZ [Concomitant]
     Active Substance: ADALIMUMAB-ADAZ
  122. HYRIMOZ [Concomitant]
     Active Substance: ADALIMUMAB-ADAZ
  123. HYRIMOZ [Concomitant]
     Active Substance: ADALIMUMAB-ADAZ
  124. HYRIMOZ [Concomitant]
     Active Substance: ADALIMUMAB-ADAZ
  125. HYRIMOZ [Concomitant]
     Active Substance: ADALIMUMAB-ADAZ
  126. HYRIMOZ [Concomitant]
     Active Substance: ADALIMUMAB-ADAZ
  127. HYRIMOZ [Concomitant]
     Active Substance: ADALIMUMAB-ADAZ
  128. INFLIXIMAB [Concomitant]
     Active Substance: INFLIXIMAB
     Indication: Product used for unknown indication
  129. INFLIXIMAB [Concomitant]
     Active Substance: INFLIXIMAB
  130. INFLIXIMAB [Concomitant]
     Active Substance: INFLIXIMAB
  131. INFLIXIMAB [Concomitant]
     Active Substance: INFLIXIMAB
  132. LISINOPRIL [Concomitant]
     Active Substance: LISINOPRIL
     Indication: Product used for unknown indication
  133. MAGNESIUM CHLORIDE [Concomitant]
     Active Substance: MAGNESIUM CHLORIDE
     Indication: Product used for unknown indication
  134. MAGNESIUM CHLORIDE [Concomitant]
     Active Substance: MAGNESIUM CHLORIDE
  135. METHOTREXATE [Concomitant]
     Active Substance: METHOTREXATE
     Indication: Product used for unknown indication
  136. METHOTREXATE [Concomitant]
     Active Substance: METHOTREXATE
  137. METHOTREXATE [Concomitant]
     Active Substance: METHOTREXATE
  138. METHOTREXATE [Concomitant]
     Active Substance: METHOTREXATE
  139. METHOTREXATE [Concomitant]
     Active Substance: METHOTREXATE
  140. METHOTREXATE [Concomitant]
     Active Substance: METHOTREXATE
  141. METHOTREXATE [Concomitant]
     Active Substance: METHOTREXATE
  142. METHOTREXATE [Concomitant]
     Active Substance: METHOTREXATE
  143. METHOTREXATE [Concomitant]
     Active Substance: METHOTREXATE
  144. METHOTREXATE [Concomitant]
     Active Substance: METHOTREXATE
  145. METHOTREXATE [Concomitant]
     Active Substance: METHOTREXATE
  146. METHOTREXATE [Concomitant]
     Active Substance: METHOTREXATE
  147. METHOTREXATE [Concomitant]
     Active Substance: METHOTREXATE
  148. METHOTREXATE [Concomitant]
     Active Substance: METHOTREXATE
  149. METHOTREXATE [Concomitant]
     Active Substance: METHOTREXATE
  150. METHOTREXATE [Concomitant]
     Active Substance: METHOTREXATE
  151. METHOTREXATE [Concomitant]
     Active Substance: METHOTREXATE
  152. METHOTREXATE [Concomitant]
     Active Substance: METHOTREXATE
  153. METHOTREXATE [Concomitant]
     Active Substance: METHOTREXATE
  154. METHOTREXATE [Concomitant]
     Active Substance: METHOTREXATE
  155. METHOTREXATE [Concomitant]
     Active Substance: METHOTREXATE
  156. METHOTREXATE [Concomitant]
     Active Substance: METHOTREXATE
  157. METHOTREXATE [Concomitant]
     Active Substance: METHOTREXATE
  158. METHOTREXATE [Concomitant]
     Active Substance: METHOTREXATE
  159. METHOTREXATE [Concomitant]
     Active Substance: METHOTREXATE
  160. METHOTREXATE [Concomitant]
     Active Substance: METHOTREXATE
  161. OXYCODONE [Concomitant]
     Active Substance: OXYCODONE
     Indication: Product used for unknown indication
  162. OXYCODONE HYDROCHLORIDE [Concomitant]
     Active Substance: OXYCODONE HYDROCHLORIDE
     Indication: Product used for unknown indication
  163. PHENYLEPHRINE HYDROCHLORIDE [Concomitant]
     Active Substance: PHENYLEPHRINE HYDROCHLORIDE
     Indication: Product used for unknown indication
  164. PHENYLEPHRINE HYDROCHLORIDE [Concomitant]
     Active Substance: PHENYLEPHRINE HYDROCHLORIDE
  165. PHOSPHORUS [Concomitant]
     Active Substance: PHOSPHORUS
     Indication: Product used for unknown indication
  166. RITUXIMAB [Concomitant]
     Active Substance: RITUXIMAB
     Indication: Product used for unknown indication
  167. RITUXIMAB [Concomitant]
     Active Substance: RITUXIMAB
  168. RITUXIMAB [Concomitant]
     Active Substance: RITUXIMAB
  169. RITUXIMAB [Concomitant]
     Active Substance: RITUXIMAB
  170. RITUXIMAB [Concomitant]
     Active Substance: RITUXIMAB
  171. RITUXIMAB [Concomitant]
     Active Substance: RITUXIMAB
  172. RITUXIMAB [Concomitant]
     Active Substance: RITUXIMAB
  173. RITUXIMAB [Concomitant]
     Active Substance: RITUXIMAB
  174. RITUXIMAB [Concomitant]
     Active Substance: RITUXIMAB
  175. RITUXIMAB [Concomitant]
     Active Substance: RITUXIMAB
  176. RITUXIMAB [Concomitant]
     Active Substance: RITUXIMAB
  177. RITUXIMAB [Concomitant]
     Active Substance: RITUXIMAB
  178. APREMILAST [Concomitant]
     Active Substance: APREMILAST
     Indication: Product used for unknown indication
  179. APREMILAST [Concomitant]
     Active Substance: APREMILAST
  180. ATOMOXETINE HYDROCHLORIDE [Concomitant]
     Active Substance: ATOMOXETINE HYDROCHLORIDE
     Indication: Product used for unknown indication
  181. ATOMOXETINE HYDROCHLORIDE [Concomitant]
     Active Substance: ATOMOXETINE HYDROCHLORIDE
  182. ATOMOXETINE HYDROCHLORIDE [Concomitant]
     Active Substance: ATOMOXETINE HYDROCHLORIDE
  183. LEFLUNOMIDE [Concomitant]
     Active Substance: LEFLUNOMIDE
     Indication: Product used for unknown indication
  184. LEFLUNOMIDE [Concomitant]
     Active Substance: LEFLUNOMIDE
  185. LEFLUNOMIDE [Concomitant]
     Active Substance: LEFLUNOMIDE
  186. LEFLUNOMIDE [Concomitant]
     Active Substance: LEFLUNOMIDE
  187. LEFLUNOMIDE [Concomitant]
     Active Substance: LEFLUNOMIDE
  188. LEFLUNOMIDE [Concomitant]
     Active Substance: LEFLUNOMIDE
  189. LEFLUNOMIDE [Concomitant]
     Active Substance: LEFLUNOMIDE
  190. LEFLUNOMIDE [Concomitant]
     Active Substance: LEFLUNOMIDE
  191. LEFLUNOMIDE [Concomitant]
     Active Substance: LEFLUNOMIDE
  192. LEFLUNOMIDE [Concomitant]
     Active Substance: LEFLUNOMIDE
  193. LEFLUNOMIDE [Concomitant]
     Active Substance: LEFLUNOMIDE
  194. LEFLUNOMIDE [Concomitant]
     Active Substance: LEFLUNOMIDE
  195. LEFLUNOMIDE [Concomitant]
     Active Substance: LEFLUNOMIDE
  196. MYCOPHENOLATE MOFETIL [Concomitant]
     Active Substance: MYCOPHENOLATE MOFETIL
     Indication: Product used for unknown indication
  197. MYCOPHENOLATE MOFETIL [Concomitant]
     Active Substance: MYCOPHENOLATE MOFETIL
  198. PANTOPRAZOLE SODIUM [Concomitant]
     Active Substance: PANTOPRAZOLE SODIUM
     Indication: Product used for unknown indication
  199. PANTOPRAZOLE SODIUM [Concomitant]
     Active Substance: PANTOPRAZOLE SODIUM
  200. PANTOPRAZOLE SODIUM [Concomitant]
     Active Substance: PANTOPRAZOLE SODIUM
  201. SULFASALAZINE [Concomitant]
     Active Substance: SULFASALAZINE
     Indication: Product used for unknown indication
  202. SULFASALAZINE [Concomitant]
     Active Substance: SULFASALAZINE
  203. SULFASALAZINE [Concomitant]
     Active Substance: SULFASALAZINE
  204. SULFASALAZINE [Concomitant]
     Active Substance: SULFASALAZINE
  205. SULFASALAZINE [Concomitant]
     Active Substance: SULFASALAZINE
  206. SULFASALAZINE [Concomitant]
     Active Substance: SULFASALAZINE
  207. SULFASALAZINE [Concomitant]
     Active Substance: SULFASALAZINE
  208. SULFASALAZINE [Concomitant]
     Active Substance: SULFASALAZINE
  209. SULFASALAZINE [Concomitant]
     Active Substance: SULFASALAZINE
  210. SULFATHIAZOLE [Concomitant]
     Active Substance: SULFATHIAZOLE
     Indication: Product used for unknown indication
  211. TRIAMCINOLONE [Concomitant]
     Active Substance: TRIAMCINOLONE
     Indication: Product used for unknown indication
  212. TRIAMCINOLONE [Concomitant]
     Active Substance: TRIAMCINOLONE
  213. VITAMIN C [Concomitant]
     Active Substance: ASCORBIC ACID
     Indication: Product used for unknown indication
  214. VOLTAREN [Concomitant]
     Active Substance: DICLOFENAC SODIUM
     Indication: Product used for unknown indication
  215. VOLTAREN [Concomitant]
     Active Substance: DICLOFENAC SODIUM
  216. AZULFIDINE [Concomitant]
     Active Substance: SULFASALAZINE
     Indication: Product used for unknown indication
  217. BERINERT [Concomitant]
     Active Substance: HUMAN C1-ESTERASE INHIBITOR
     Indication: Product used for unknown indication
  218. BUPRENORPHINE HYDROCHLORIDE [Concomitant]
     Active Substance: BUPRENORPHINE HYDROCHLORIDE
     Indication: Product used for unknown indication
  219. CALCIUM ASCORBATE [Concomitant]
     Active Substance: CALCIUM ASCORBATE
     Indication: Product used for unknown indication
  220. CHOLECALCIFEROL [Concomitant]
     Active Substance: CHOLECALCIFEROL
     Indication: Product used for unknown indication
  221. CHOLECALCIFEROL [Concomitant]
     Active Substance: CHOLECALCIFEROL
  222. CYCLOBENZAPRINE [Concomitant]
     Active Substance: CYCLOBENZAPRINE
     Indication: Product used for unknown indication
  223. ERGOCALCIFEROL [Concomitant]
     Active Substance: ERGOCALCIFEROL
     Indication: Product used for unknown indication
  224. FINACEA [Concomitant]
     Active Substance: AZELAIC ACID
     Indication: Product used for unknown indication
  225. FLUMETHASONE PIVALATE [Concomitant]
     Active Substance: FLUMETHASONE PIVALATE
     Indication: Product used for unknown indication
  226. FLUMETHASONE PIVALATE [Concomitant]
     Active Substance: FLUMETHASONE PIVALATE
  227. FLUTICASONE [Concomitant]
     Active Substance: FLUTICASONE
     Indication: Product used for unknown indication
  228. FLUTICASONE PROPIONATE [Concomitant]
     Active Substance: FLUTICASONE PROPIONATE
     Indication: Product used for unknown indication
  229. GOLD SODIUM THIOMALATE [Concomitant]
     Active Substance: GOLD SODIUM THIOMALATE
     Indication: Product used for unknown indication
  230. LAMOTRIGINE [Concomitant]
     Active Substance: LAMOTRIGINE
     Indication: Product used for unknown indication
  231. LAMOTRIGINE [Concomitant]
     Active Substance: LAMOTRIGINE
  232. LEVOMILNACIPRAN [Concomitant]
     Active Substance: LEVOMILNACIPRAN
     Indication: Product used for unknown indication
  233. METHYLPREDNISOLONE [Concomitant]
     Active Substance: METHYLPREDNISOLONE
     Indication: Product used for unknown indication
  234. MINOCYCLINE [Concomitant]
     Active Substance: MINOCYCLINE HYDROCHLORIDE
     Indication: Product used for unknown indication
  235. MYRBETRIQ [Concomitant]
     Active Substance: MIRABEGRON
     Indication: Product used for unknown indication
  236. MYRBETRIQ [Concomitant]
     Active Substance: MIRABEGRON
     Dosage: TABLET (EXTENDED- RELEASE)
  237. NAPROXEN [Concomitant]
     Active Substance: NAPROXEN
     Indication: Product used for unknown indication
  238. NUCALA [Concomitant]
     Active Substance: MEPOLIZUMAB
     Indication: Product used for unknown indication
  239. OTEZLA [Concomitant]
     Active Substance: APREMILAST
     Indication: Product used for unknown indication
  240. OTEZLA [Concomitant]
     Active Substance: APREMILAST
  241. OTEZLA [Concomitant]
     Active Substance: APREMILAST
  242. OTEZLA [Concomitant]
     Active Substance: APREMILAST
  243. OTEZLA [Concomitant]
     Active Substance: APREMILAST
  244. OTEZLA [Concomitant]
     Active Substance: APREMILAST
  245. PSEUDOEPHEDRINE HYDROCHLORIDE [Concomitant]
     Active Substance: PSEUDOEPHEDRINE HYDROCHLORIDE
     Indication: Product used for unknown indication
  246. PSEUDOEPHEDRINE HYDROCHLORIDE [Concomitant]
     Active Substance: PSEUDOEPHEDRINE HYDROCHLORIDE
  247. PSEUDOEPHEDRINE HYDROCHLORIDE [Concomitant]
     Active Substance: PSEUDOEPHEDRINE HYDROCHLORIDE
  248. SULFASALAZINE [Concomitant]
     Active Substance: SULFASALAZINE
     Indication: Product used for unknown indication
  249. CELECOXIB [Concomitant]
     Active Substance: CELECOXIB
     Indication: Product used for unknown indication
  250. CELECOXIB [Concomitant]
     Active Substance: CELECOXIB
  251. SULFAMETHOXAZOLE [Concomitant]
     Active Substance: SULFAMETHOXAZOLE
     Indication: Product used for unknown indication
  252. TRAMADOL HYDROCHLORIDE [Concomitant]
     Active Substance: TRAMADOL HYDROCHLORIDE
     Indication: Product used for unknown indication
  253. TRETINOIN [Concomitant]
     Active Substance: TRETINOIN
     Indication: Product used for unknown indication
  254. TYLENOL [Concomitant]
     Active Substance: ACETAMINOPHEN
     Indication: Product used for unknown indication
  255. VENTOLIN [Concomitant]
     Active Substance: ALBUTEROL SULFATE
     Indication: Product used for unknown indication
  256. XELJANZ [Concomitant]
     Active Substance: TOFACITINIB CITRATE
     Indication: Product used for unknown indication
  257. ZOPICLONE [Concomitant]
     Active Substance: ZOPICLONE
     Indication: Product used for unknown indication

REACTIONS (2)
  - Foetal exposure during pregnancy [Unknown]
  - Congenital anomaly [Unknown]
